FAERS Safety Report 8497607-1 (Version None)
Quarter: 2012Q3

REPORT INFORMATION
  Report Type: 
  Country: None (occurrence: None)
  Receive Date: 20120709
  Receipt Date: 20120607
  Transmission Date: 20120928
  Serious: No
  Sender: FDA-Public Use
  Company Number: US-AMGEN-USASP2011035817

PATIENT
  Age: 50 Year
  Sex: Female
  Weight: 74.83 kg

DRUGS (7)
  1. ESTRADIOL [Concomitant]
  2. PLAQUENIL [Concomitant]
     Dosage: 200 MG, QD
  3. VITAMIN D [Concomitant]
     Dosage: 50000 IU, QWK
  4. ARAVA [Concomitant]
     Dosage: 20 MG, QD
  5. DOXYCYCLINE [Concomitant]
     Dosage: 100 MG, BID
  6. MOBIC [Concomitant]
     Dosage: 15 MG, QD
  7. ENBREL [Suspect]
     Indication: RHEUMATOID ARTHRITIS
     Dosage: 50 MG, QWK
     Dates: start: 20101124

REACTIONS (7)
  - HEADACHE [None]
  - ARTHRALGIA [None]
  - INJECTION SITE PAIN [None]
  - INJECTION SITE HAEMATOMA [None]
  - PAIN IN EXTREMITY [None]
  - NIGHT SWEATS [None]
  - CONJUNCTIVITIS INFECTIVE [None]
